FAERS Safety Report 11413642 (Version 3)
Quarter: 2015Q4

REPORT INFORMATION
  Report Type: Spontaneous
  Country: JP (occurrence: JP)
  Receive Date: 20150824
  Receipt Date: 20151016
  Transmission Date: 20160304
  Serious: Yes (Hospitalization, Other)
  Sender: FDA-Public Use
  Company Number: JP-ASTRAZENECA-2015SE80989

PATIENT
  Age: 17481 Day
  Sex: Male
  Weight: 76 kg

DRUGS (13)
  1. SEROQUEL [Suspect]
     Active Substance: QUETIAPINE FUMARATE
     Indication: BIPOLAR DISORDER
     Route: 048
     Dates: start: 20150105, end: 20150705
  2. ROHYPNOL [Concomitant]
     Active Substance: FLUNITRAZEPAM
     Dates: start: 20121119
  3. SEROQUEL [Suspect]
     Active Substance: QUETIAPINE FUMARATE
     Indication: PRODUCT USED FOR UNKNOWN INDICATION
     Route: 048
     Dates: start: 20150105, end: 20150705
  4. SEROQUEL [Suspect]
     Active Substance: QUETIAPINE FUMARATE
     Indication: PRODUCT USED FOR UNKNOWN INDICATION
     Route: 048
     Dates: start: 20150706
  5. SEROQUEL [Suspect]
     Active Substance: QUETIAPINE FUMARATE
     Indication: BIPOLAR DISORDER
     Route: 048
     Dates: start: 20150706
  6. TETRAMIDE [Suspect]
     Active Substance: MIANSERIN
     Indication: PRODUCT USED FOR UNKNOWN INDICATION
     Route: 048
     Dates: start: 20121119, end: 20150816
  7. SEROQUEL [Suspect]
     Active Substance: QUETIAPINE FUMARATE
     Indication: BIPOLAR DISORDER
     Route: 048
     Dates: start: 20121119, end: 20150104
  8. AMOBAN [Concomitant]
     Active Substance: ZOPICLONE
     Dates: start: 20121119, end: 20150705
  9. VEGETAMIN B [Concomitant]
     Active Substance: CHLORPROMAZINE HYDROCHLORIDE\PHENOBARBITAL\PROMETHAZINE
     Dates: start: 20121119, end: 20150104
  10. LENDORMIN [Concomitant]
     Active Substance: BROTIZOLAM
     Route: 048
  11. LANDSEN [Suspect]
     Active Substance: CLONAZEPAM
     Indication: INSOMNIA
     Route: 048
     Dates: start: 20150706, end: 20150816
  12. BENZALIN [Concomitant]
     Active Substance: NITRAZEPAM
     Dates: start: 20150706
  13. SEROQUEL [Suspect]
     Active Substance: QUETIAPINE FUMARATE
     Indication: PRODUCT USED FOR UNKNOWN INDICATION
     Route: 048
     Dates: start: 20121119, end: 20150104

REACTIONS (2)
  - Hepatic function abnormal [Recovered/Resolved]
  - Intentional product misuse [Unknown]

NARRATIVE: CASE EVENT DATE: 20121119
